FAERS Safety Report 18015968 (Version 2)
Quarter: 2020Q3

REPORT INFORMATION
  Report Type: Report from Study
  Country: US (occurrence: US)
  Receive Date: 20200713
  Receipt Date: 20200718
  Transmission Date: 20201103
  Serious: Yes (Hospitalization)
  Sender: FDA-Public Use
  Company Number: PHEH2017US003599

PATIENT
  Sex: Male
  Weight: 83.01 kg

DRUGS (5)
  1. OTEZLA [Concomitant]
     Active Substance: APREMILAST
     Indication: PSORIASIS
     Dosage: 30 MG, BID
     Route: 065
     Dates: start: 20151029, end: 20170116
  2. STELARA [Concomitant]
     Active Substance: USTEKINUMAB
     Indication: PSORIASIS
     Dosage: 45 MG, OTHER (EVERY 12 WEEKS)
     Route: 065
     Dates: start: 20160803, end: 20161218
  3. PIMECROLIMUS. [Concomitant]
     Active Substance: PIMECROLIMUS
     Indication: PSORIASIS
     Dosage: UNK UNK, QD
     Route: 065
  4. COSENTYX [Suspect]
     Active Substance: SECUKINUMAB
     Indication: PSORIASIS
     Dosage: 300 MG, QMO
     Route: 058
     Dates: start: 20161219
  5. COSENTYX [Suspect]
     Active Substance: SECUKINUMAB
     Dosage: 300 MG, QMO
     Route: 058

REACTIONS (14)
  - Acute kidney injury [Recovered/Resolved]
  - Chronic obstructive pulmonary disease [Recovered/Resolved]
  - Ejection fraction decreased [Recovering/Resolving]
  - Palpitations [Recovering/Resolving]
  - Chronic kidney disease [Recovered/Resolved]
  - Blood urea increased [Recovering/Resolving]
  - Cardiomegaly [Recovering/Resolving]
  - Dyspnoea exertional [Recovering/Resolving]
  - Nasopharyngitis [Recovering/Resolving]
  - Heart rate increased [Recovered/Resolved]
  - Productive cough [Recovering/Resolving]
  - Atrial fibrillation [Recovered/Resolved]
  - Blood creatinine increased [Recovering/Resolving]
  - Respiratory symptom [Unknown]

NARRATIVE: CASE EVENT DATE: 20170120
